FAERS Safety Report 7638681-1 (Version None)
Quarter: 2011Q3

REPORT INFORMATION
  Report Type: 
  Country: None (occurrence: None)
  Receive Date: 20110727
  Receipt Date: 20110725
  Transmission Date: 20111222
  Serious: Yes (Disabling, Other)
  Sender: FDA-Public Use
  Company Number: US-PFIZER INC-2011160092

PATIENT
  Sex: Male

DRUGS (16)
  1. LYRICA [Suspect]
     Indication: PAIN
  2. LYRICA [Suspect]
     Indication: PAIN IN EXTREMITY
  3. SINEMET [Concomitant]
     Indication: PARKINSON'S DISEASE
     Dosage: (CARBIDOPA, 25 MG)/( LEVODOPA,100 MG), SIX TIMES DAILY
     Route: 048
  4. PRILOSEC [Concomitant]
     Indication: GASTROOESOPHAGEAL REFLUX DISEASE
     Dosage: 20 MG, DAILY
     Route: 048
     Dates: start: 19910101
  5. PRAMIPEXOLE [Concomitant]
     Indication: PARKINSON'S DISEASE
     Dosage: 0.25 MG, 3X/DAY
  6. XANAX [Suspect]
     Indication: ANXIETY
     Dosage: 1 MG, UNK
     Route: 048
  7. LYRICA [Suspect]
     Indication: PARKINSON'S DISEASE
     Dosage: 75 MG, 2X/DAY
     Route: 048
     Dates: start: 20110518, end: 20110701
  8. ACETYLSALICYLIC ACID [Concomitant]
     Dosage: 81 MG DAILY IN MORNING
     Route: 048
  9. TERAZOSIN [Concomitant]
     Indication: PROSTATIC DISORDER
     Dosage: 10 MG, DAILY
  10. TYLENOL-500 [Concomitant]
     Indication: PAIN IN EXTREMITY
     Dosage: UNK, AS NEEDED
  11. PRAVASTATIN SODIUM [Concomitant]
     Indication: BLOOD CHOLESTEROL ABNORMAL
     Dosage: 40 MG, DAILY
  12. XANAX [Concomitant]
     Dosage: 1 MG, AS NEEDED
  13. TYLENOL-500 [Concomitant]
     Indication: SLEEP DISORDER
     Dosage: 1000 MG DAILY AT NIGHT
     Route: 048
  14. XANAX [Suspect]
     Dosage: 1MG DAILY
     Route: 048
  15. AMBIEN [Suspect]
     Indication: SLEEP DISORDER
     Dosage: 10 MG DAILY AT NIGHT
     Route: 048
  16. ZOLPIDEM TARTRATE [Concomitant]
     Indication: SLEEP DISORDER
     Dosage: 10 MG, DAILY AT NIGHT

REACTIONS (9)
  - OEDEMA PERIPHERAL [None]
  - DRUG INEFFECTIVE [None]
  - GAIT DISTURBANCE [None]
  - FEELING ABNORMAL [None]
  - HYPOAESTHESIA [None]
  - SCIATICA [None]
  - ABDOMINAL PAIN UPPER [None]
  - PAIN [None]
  - BURNING SENSATION [None]
